FAERS Safety Report 15440116 (Version 1)
Quarter: 2018Q3

REPORT INFORMATION
  Report Type: Spontaneous
  Country: US (occurrence: US)
  Receive Date: 20180925
  Receipt Date: 20180925
  Transmission Date: 20181010
  Serious: Yes (Life-Threatening, Hospitalization)
  Sender: FDA-Public Use
  Company Number: None

PATIENT
  Age: 58 Year
  Sex: Female
  Weight: 129.15 kg

DRUGS (6)
  1. SYNTHROID [Concomitant]
     Active Substance: LEVOTHYROXINE SODIUM
  2. JARDIANCE [Suspect]
     Active Substance: EMPAGLIFLOZIN
     Indication: DIABETES MELLITUS
     Dosage: ?          QUANTITY:1 TABLET(S);?
     Route: 048
     Dates: start: 20180911, end: 20180918
  3. CALTRATE+D [Concomitant]
  4. ASPIRIN. [Concomitant]
     Active Substance: ASPIRIN
  5. BASAGLAR [Concomitant]
     Active Substance: INSULIN GLARGINE
  6. ONE A DAY MULTIVITAMIN [Concomitant]

REACTIONS (4)
  - Diabetic ketoacidosis [None]
  - Weight decreased [None]
  - Vomiting [None]
  - Drug effect decreased [None]

NARRATIVE: CASE EVENT DATE: 20180918
